FAERS Safety Report 19241692 (Version 1)
Quarter: 2021Q2

REPORT INFORMATION
  Report Type: Spontaneous
  Country: GB (occurrence: GB)
  Receive Date: 20210511
  Receipt Date: 20210511
  Transmission Date: 20210717
  Serious: Yes (Other)
  Sender: FDA-Public Use
  Company Number: GB-GLAXOSMITHKLINE-GB2021GSK101659

PATIENT
  Age: 18 Year
  Sex: Male
  Weight: 72 kg

DRUGS (7)
  1. BOOTS ALLERGY RELIEF ANTIHISTAMINE (CHLORPHENIRAMINE MALEATE) [Concomitant]
     Indication: ILL-DEFINED DISORDER
     Dosage: UNK
     Route: 065
  2. IBUPROFEN. [Concomitant]
     Active Substance: IBUPROFEN
     Indication: ILL-DEFINED DISORDER
     Dosage: UNK
     Route: 065
  3. DIFFERIN [Concomitant]
     Active Substance: ADAPALENE
     Indication: ILL-DEFINED DISORDER
     Dosage: UNK
     Route: 065
  4. PARACETAMOL [Concomitant]
     Active Substance: ACETAMINOPHEN
     Indication: ILL-DEFINED DISORDER
     Dosage: UNK
     Route: 065
  5. PIRINASE HAYFEVER RELIEF NASAL SPRAY [Suspect]
     Active Substance: FLUTICASONE PROPIONATE
     Indication: ILL-DEFINED DISORDER
     Dosage: UNK, (1X SPRAY IN EACH NOSTRIL)
     Route: 045
     Dates: start: 20210508, end: 20210508
  6. CETIRIZINE HYDROCHLORIDE. [Concomitant]
     Active Substance: CETIRIZINE HYDROCHLORIDE
     Indication: ILL-DEFINED DISORDER
     Dosage: UNK
     Route: 065
  7. PIRINASE HAYFEVER RELIEF NASAL SPRAY [Suspect]
     Active Substance: FLUTICASONE PROPIONATE
     Indication: SEASONAL ALLERGY

REACTIONS (1)
  - Adverse drug reaction [Recovering/Resolving]

NARRATIVE: CASE EVENT DATE: 20210509
